FAERS Safety Report 24788315 (Version 4)
Quarter: 2025Q1

REPORT INFORMATION
  Report Type: Report from Study
  Country: US (occurrence: US)
  Receive Date: 20241230
  Receipt Date: 20250319
  Transmission Date: 20250409
  Serious: Yes (Death, Hospitalization, Other)
  Sender: ACADIA PHARMACEUTICALS
  Company Number: US-ACADIA PHARMACEUTICALS INC.-ACA-2024-PIM-008820

PATIENT
  Sex: Female

DRUGS (22)
  1. NUPLAZID [Suspect]
     Active Substance: PIMAVANSERIN TARTRATE
     Indication: Parkinson^s disease
     Dosage: 34 MILLIGRAM, QD
     Route: 048
     Dates: start: 20200522
  2. AMLODIPINE [Concomitant]
     Active Substance: AMLODIPINE BESYLATE
  3. AMLODIPINE [Concomitant]
     Active Substance: AMLODIPINE BESYLATE
     Dosage: 5 MILLIGRAM, QD
     Route: 048
  4. AMOXICILLIN [Concomitant]
     Active Substance: AMOXICILLIN
  5. BENZONATATE [Concomitant]
     Active Substance: BENZONATATE
  6. CARBIDOPA\LEVODOPA [Concomitant]
     Active Substance: CARBIDOPA\LEVODOPA
     Dosage: 25-100 MILLIGRAM (AS NEEDED)
  7. CLONAZEPAM [Concomitant]
     Active Substance: CLONAZEPAM
     Dosage: 0.5 MILLIGRAM, QD
     Route: 048
  8. DONEPEZIL [Concomitant]
     Active Substance: DONEPEZIL
     Dosage: 10 MILLIGRAM, QD
  9. DOXYCYCLINE [Concomitant]
     Active Substance: DOXYCYCLINE
  10. ERYTHROMYCIN [Concomitant]
     Active Substance: ERYTHROMYCIN
     Route: 047
  11. FLUDROCORTISONE [Concomitant]
     Active Substance: FLUDROCORTISONE
     Dosage: 0.1 MILLIGRAM, QD
     Route: 048
  12. MIDODRINE [Concomitant]
     Active Substance: MIDODRINE
     Dosage: 15 MILLIGRAM, TID (TAKE 1 AND 1/2 TABLET BY MOUTH DAILY)
     Route: 048
  13. MOXIFLOXACIN [Concomitant]
     Active Substance: MOXIFLOXACIN
  14. OLANZAPINE [Concomitant]
     Active Substance: OLANZAPINE
  15. ONDANSETRON [Concomitant]
     Active Substance: ONDANSETRON
  16. PREDNISOLONE [Concomitant]
     Active Substance: PREDNISOLONE
     Route: 047
  17. RYTARY [Concomitant]
     Active Substance: CARBIDOPA\LEVODOPA
     Dosage: 36.25-145 MILLIGRAM (2 CAPSULES)
     Route: 048
  18. RYTARY [Concomitant]
     Active Substance: CARBIDOPA\LEVODOPA
     Dosage: 61.25-245 MILLIGRAM (1 CAPSULE)
     Route: 048
  19. SERTRALINE [Concomitant]
     Active Substance: SERTRALINE HYDROCHLORIDE
     Dosage: 100 MILLIGRAM, QD (FOR 90 DAYS)
     Route: 048
  20. VALACYCLOVIR [Concomitant]
     Active Substance: VALACYCLOVIR HYDROCHLORIDE
  21. VITAMIN D3 [Concomitant]
     Active Substance: CHOLECALCIFEROL
  22. ASPIRIN [Concomitant]
     Active Substance: ASPIRIN
     Dosage: 81 MILLIGRAM, QD

REACTIONS (1)
  - Cardiac arrest [Fatal]
